FAERS Safety Report 23842014 (Version 2)
Quarter: 2024Q4

REPORT INFORMATION
  Report Type: Spontaneous
  Country: IN (occurrence: IN)
  Receive Date: 20240510
  Receipt Date: 20241104
  Transmission Date: 20250115
  Serious: Yes (Hospitalization)
  Sender: PFIZER
  Company Number: IN-PFIZER INC-PV202400059906

PATIENT
  Age: 73 Year
  Sex: Female

DRUGS (2)
  1. CRIZOTINIB [Suspect]
     Active Substance: CRIZOTINIB
     Indication: Lung adenocarcinoma
     Dosage: 250 MG, 2X/DAY
     Route: 048
     Dates: start: 20240429
  2. CRIZOTINIB [Suspect]
     Active Substance: CRIZOTINIB
     Dosage: 250 MG, 1X/DAY
     Route: 048
     Dates: start: 20240510

REACTIONS (3)
  - Blood sodium decreased [Unknown]
  - Blood potassium decreased [Unknown]
  - Intentional product misuse [Unknown]

NARRATIVE: CASE EVENT DATE: 20240510
